FAERS Safety Report 24004441 (Version 1)
Quarter: 2024Q2

REPORT INFORMATION
  Report Type: Spontaneous
  Country: HN (occurrence: HN)
  Receive Date: 20240624
  Receipt Date: 20240624
  Transmission Date: 20240716
  Serious: Yes (Hospitalization)
  Sender: FDA-Public Use
  Company Number: HN-STRIDES ARCOLAB LIMITED-2024SP007320

PATIENT
  Age: 41 Year
  Sex: Female

DRUGS (9)
  1. PREDNISOLONE [Suspect]
     Active Substance: PREDNISOLONE
     Indication: Anti-neutrophil cytoplasmic antibody positive vasculitis
     Dosage: 75 MILLIGRAM, QD
     Route: 048
  2. PREDNISOLONE [Suspect]
     Active Substance: PREDNISOLONE
     Dosage: UNK, DOSE REDUCED
     Route: 048
  3. METRONIDAZOLE [Suspect]
     Active Substance: METRONIDAZOLE
     Indication: Anti-neutrophil cytoplasmic antibody positive vasculitis
     Dosage: UNK
     Route: 065
  4. METHYLPREDNISOLONE [Suspect]
     Active Substance: METHYLPREDNISOLONE
     Indication: Anti-neutrophil cytoplasmic antibody positive vasculitis
     Dosage: 1 GRAM, QD FOR 3 DAYS
     Route: 042
  5. PROPYLTHIOURACIL [Concomitant]
     Active Substance: PROPYLTHIOURACIL
     Indication: Hyperthyroidism
     Dosage: 100 MILLIGRAM, EVERY 12 HRS
     Route: 065
  6. METHIMAZOLE [Concomitant]
     Active Substance: METHIMAZOLE
     Indication: Hyperthyroidism
     Dosage: UNK
     Route: 065
  7. CHOLESTYRAMINE [Concomitant]
     Active Substance: CHOLESTYRAMINE
     Indication: Anti-neutrophil cytoplasmic antibody positive vasculitis
     Dosage: UNK
     Route: 065
  8. LEVOCARNITINE [Concomitant]
     Active Substance: LEVOCARNITINE
     Indication: Anti-neutrophil cytoplasmic antibody positive vasculitis
     Dosage: UNK
     Route: 065
  9. OXACILLIN [Concomitant]
     Active Substance: OXACILLIN SODIUM
     Indication: Anti-neutrophil cytoplasmic antibody positive vasculitis
     Dosage: UNK
     Route: 065

REACTIONS (2)
  - Drug ineffective [Unknown]
  - Off label use [Unknown]
